FAERS Safety Report 25940912 (Version 1)
Quarter: 2025Q4

REPORT INFORMATION
  Report Type: Spontaneous
  Country: US (occurrence: None)
  Receive Date: 20251018
  Receipt Date: 20251018
  Transmission Date: 20260117
  Serious: Yes (Hospitalization, Other)
  Sender: FDA-CTU
  Company Number: None

PATIENT
  Age: 46 Year
  Sex: Male
  Weight: 67.5 kg

DRUGS (8)
  1. 7-HYDROXYMITRAGYNINE [Suspect]
     Active Substance: 7-HYDROXYMITRAGYNINE
     Indication: Pain
     Dosage: OTHER QUANTITY : 4 TABLET(S);?FREQUENCY : AS NEEDED;?
     Route: 048
  2. 7-HYDROXYMITRAGYNINE [Suspect]
     Active Substance: 7-HYDROXYMITRAGYNINE
     Indication: Pain
     Dosage: OTHER QUANTITY : 4 TABLET(S);?FREQUENCY : AS NEEDED;?
     Route: 048
  3. METOPROLOL [Concomitant]
     Active Substance: METOPROLOL
  4. AMLODIPINE [Concomitant]
     Active Substance: AMLODIPINE BESYLATE
  5. ALBUTEROL [Concomitant]
     Active Substance: ALBUTEROL
  6. SINGULAIR [Concomitant]
     Active Substance: MONTELUKAST SODIUM
  7. ATORVASTATIN [Concomitant]
     Active Substance: ATORVASTATIN
  8. Kratom (Raw Powder) [Concomitant]

REACTIONS (7)
  - Job dissatisfaction [None]
  - Withdrawal syndrome [None]
  - Drug dependence [None]
  - Heart rate increased [None]
  - Hypertension [None]
  - Product formulation issue [None]
  - Weight decreased [None]

NARRATIVE: CASE EVENT DATE: 20250828
